FAERS Safety Report 22374133 (Version 1)
Quarter: 2023Q2

REPORT INFORMATION
  Report Type: Spontaneous
  Country: US (occurrence: US)
  Receive Date: 20230526
  Receipt Date: 20230526
  Transmission Date: 20230722
  Serious: Yes (Other)
  Sender: FDA-Public Use
  Company Number: US-FreseniusKabi-FK202307400

PATIENT
  Age: 13 Year
  Sex: Male

DRUGS (4)
  1. FLUMAZENIL [Suspect]
     Active Substance: FLUMAZENIL
     Indication: Reversal of sedation
     Dosage: 0.5 MG
     Route: 042
  2. LITHIUM [Concomitant]
     Active Substance: LITHIUM
     Indication: Product used for unknown indication
     Dosage: 1050MG
  3. DIVALPROEX SODIUM [Concomitant]
     Active Substance: DIVALPROEX SODIUM
     Indication: Product used for unknown indication
     Dosage: 250 MG
  4. DIAZEPAM [Concomitant]
     Active Substance: DIAZEPAM
     Indication: Product used for unknown indication
     Dosage: 60MG

REACTIONS (1)
  - Generalised tonic-clonic seizure [Recovered/Resolved]
